FAERS Safety Report 4768279-4 (Version None)
Quarter: 2005Q3

REPORT INFORMATION
  Report Type: 
  Country: None (occurrence: None)
  Receive Date: 20050815
  Receipt Date: 20050803
  Transmission Date: 20060218
  Serious: Yes (Other)
  Sender: FDA-Public Use
  Company Number: 2005BH001048

PATIENT
  Age: 13 Year
  Sex: Male

DRUGS (3)
  1. LACTATED RINGER'S [Suspect]
     Dosage: 500 ML; ONCE; IV
     Route: 042
     Dates: start: 20050714, end: 20050714
  2. IBUPROFEN [Concomitant]
  3. ACETAMINOPHEN [Concomitant]

REACTIONS (3)
  - HYPERSENSITIVITY [None]
  - INFUSION RELATED REACTION [None]
  - URTICARIA [None]
